FAERS Safety Report 8943949 (Version 1)
Quarter: 2012Q4

REPORT INFORMATION
  Report Type: 
  Country: US (occurrence: US)
  Receive Date: 20121204
  Receipt Date: 20121204
  Transmission Date: 20130627
  Serious: Yes (Other)
  Sender: FDA-Public Use
  Company Number: US-MUTUAL PHARMACEUTICAL COMPANY, INC.-ALLP20120046

PATIENT
  Sex: Female
  Weight: 102.15 kg

DRUGS (10)
  1. ALLOPURINOL [Suspect]
     Indication: GOUT
     Route: 048
  2. COUMADIN [Concomitant]
     Indication: ANTICOAGULANT THERAPY
     Route: 048
     Dates: start: 2002
  3. TOFRANIL [Concomitant]
     Indication: ANXIETY
     Route: 048
  4. TOFRANIL [Concomitant]
     Indication: SLEEP DISORDER NOS
  5. XANAX [Concomitant]
     Indication: ANXIETY
     Route: 048
  6. SIMVASTATIN [Concomitant]
     Indication: CHOLESTEROL HIGH
     Route: 048
  7. LOTRIL 5/20 MG [Concomitant]
     Indication: BLOOD PRESSURE
     Route: 048
  8. CORGARD [Concomitant]
     Indication: BLOOD PRESSURE
     Route: 048
  9. LASIX [Concomitant]
     Indication: WATER RETENTION
     Route: 048
     Dates: start: 2011
  10. LOW DOSE ASPIRIN [Concomitant]
     Indication: CARDIAC DISORDER PROPHYLAXIS
     Route: 048

REACTIONS (2)
  - Acute lung injury [None]
  - Cataract [None]
